FAERS Safety Report 5047054-X (Version None)
Quarter: 2006Q3

REPORT INFORMATION
  Report Type: 
  Country: None (occurrence: None)
  Receive Date: 20060703
  Receipt Date: 20060622
  Transmission Date: 20061208
  Serious: Yes (Other)
  Sender: FDA-Public Use
  Company Number: 2006078826

PATIENT
  Age: 40 Year
  Sex: Male
  Weight: 86.637 kg

DRUGS (9)
  1. LIPITOR [Suspect]
     Dosage: 10 MG (10 MG, 1 IN 1 D), ORAL
     Route: 048
     Dates: start: 20050101
  2. GEMFIBROZIL [Suspect]
     Indication: BLOOD TRIGLYCERIDES INCREASED
     Dates: start: 20060401, end: 20060501
  3. GENGRAF (CICLOSPORIN) [Concomitant]
  4. PROTONIX [Concomitant]
  5. CLONIDINE [Concomitant]
  6. CARDIZEM [Concomitant]
  7. TOPROL-XL [Concomitant]
  8. SEPTRA [Concomitant]
  9. AMBIEN [Concomitant]

REACTIONS (2)
  - BLOOD CREATININE INCREASED [None]
  - WHITE BLOOD CELL COUNT DECREASED [None]
